FAERS Safety Report 23955102 (Version 8)
Quarter: 2025Q1

REPORT INFORMATION
  Report Type: Spontaneous
  Country: US (occurrence: US)
  Receive Date: 20240610
  Receipt Date: 20250218
  Transmission Date: 20250409
  Serious: Yes (Hospitalization, Other)
  Sender: BRISTOL-MYERS SQUIBB COMPANY
  Company Number: US-EXELIXIS-CABO-24076536

PATIENT
  Age: 72 Year
  Sex: Female

DRUGS (12)
  1. OPDIVO [Suspect]
     Active Substance: NIVOLUMAB
     Indication: Renal cell carcinoma
     Dates: start: 202207
  2. CABOMETYX [Suspect]
     Active Substance: CABOZANTINIB S-MALATE
     Indication: Renal cell carcinoma
     Dates: start: 202207
  3. CABOMETYX [Suspect]
     Active Substance: CABOZANTINIB S-MALATE
     Dosage: REDUCED DOSE OF 20 MG
     Dates: start: 20240509, end: 20240708
  4. HYDROCHLOROTHIAZIDE [Concomitant]
     Active Substance: HYDROCHLOROTHIAZIDE
     Indication: Product used for unknown indication
  5. LEVOTHYROXINE SODIUM [Concomitant]
     Active Substance: LEVOTHYROXINE SODIUM
     Indication: Product used for unknown indication
  6. ATORVASTATIN CALCIUM [Concomitant]
     Active Substance: ATORVASTATIN CALCIUM
     Indication: Product used for unknown indication
  7. LOSARTAN POTASSIUM [Concomitant]
     Active Substance: LOSARTAN POTASSIUM
     Indication: Product used for unknown indication
  8. ASPIRIN [Concomitant]
     Active Substance: ASPIRIN
     Indication: Product used for unknown indication
  9. VITAMINS NOS [Concomitant]
     Active Substance: VITAMINS
     Indication: Product used for unknown indication
  10. AMOXICILLIN [Concomitant]
     Active Substance: AMOXICILLIN
     Indication: Product used for unknown indication
  11. LACTOBACILLUS ACID [Concomitant]
     Indication: Product used for unknown indication
  12. LACTOBACILLUS ACID [Concomitant]

REACTIONS (12)
  - Blood pressure increased [Unknown]
  - Taste disorder [Not Recovered/Not Resolved]
  - Localised infection [Recovered/Resolved]
  - Defaecation urgency [Unknown]
  - Arthropathy [Unknown]
  - Incision site vesicles [Unknown]
  - Postoperative wound infection [Not Recovered/Not Resolved]
  - Implant site extravasation [Unknown]
  - Lung neoplasm malignant [Unknown]
  - Post procedural discharge [Unknown]
  - Postoperative wound complication [Unknown]
  - Osteomyelitis [Unknown]

NARRATIVE: CASE EVENT DATE: 20240829
